FAERS Safety Report 5810131-7 (Version None)
Quarter: 2008Q3

REPORT INFORMATION
  Report Type: 
  Country: None (occurrence: None)
  Receive Date: 20080715
  Receipt Date: 20070712
  Transmission Date: 20090109
  Serious: No
  Sender: FDA-Public Use
  Company Number: A0663678A

PATIENT
  Age: 54 Year
  Sex: Male

DRUGS (2)
  1. IMITREX [Suspect]
     Indication: MIGRAINE
     Dosage: 100MG AS REQUIRED
     Route: 048
  2. NO CONCURRENT MEDICATION [Concomitant]

REACTIONS (3)
  - ABDOMINAL PAIN UPPER [None]
  - NAUSEA [None]
  - STOMACH DISCOMFORT [None]
